FAERS Safety Report 5051480-2 (Version None)
Quarter: 2006Q3

REPORT INFORMATION
  Report Type: 
  Country: None (occurrence: None)
  Receive Date: 20060711
  Receipt Date: 20060620
  Transmission Date: 20061208
  Serious: Yes (Other)
  Sender: FDA-Public Use
  Company Number: US200606005039

PATIENT
  Age: 73 Year
  Sex: Female

DRUGS (8)
  1. FORTEO [Suspect]
     Dosage: 20 UG
     Dates: start: 20060612
  2. BENICAR [Concomitant]
  3. ASPIRIN [Concomitant]
  4. BENADRYL    (AMMONIUM CHLORIDE, DIPHENHYDRAMINE HYDROCHLORIDE) [Concomitant]
  5. CALCIUM GLUCONATE [Concomitant]
  6. DIAZEPAM [Concomitant]
  7. KEFLEX [Concomitant]
  8. FORTEO [Concomitant]

REACTIONS (2)
  - CEREBROVASCULAR ACCIDENT [None]
  - URINARY TRACT INFECTION [None]
